FAERS Safety Report 11294518 (Version 1)
Quarter: 2015Q3

REPORT INFORMATION
  Report Type: Spontaneous
  Country: US (occurrence: None)
  Receive Date: 20150721
  Receipt Date: 20150721
  Transmission Date: 20151125
  Serious: Yes (Hospitalization)
  Sender: FDA-Public Use
  Company Number: US-H14001-15-01392

PATIENT
  Age: 16 Year
  Sex: Female
  Weight: 59 kg

DRUGS (3)
  1. CYCLOBENZAPRINE (CYCLOBENZAPRINE) (CYCLOBENZAPRINE) [Suspect]
     Active Substance: CYCLOBENZAPRINE
     Indication: PRODUCT USED FOR UNKNOWN INDICATION
     Dosage: 2 MG/KG)
  2. LACOSAMIDE [Suspect]
     Active Substance: LACOSAMIDE
     Indication: PRODUCT USED FOR UNKNOWN INDICATION
     Dosage: 4.5 G
  3. LEVETIRACETAM (LEVETIRACETAM) (LEVETIRACETAM) [Suspect]
     Active Substance: LEVETIRACETAM
     Indication: PRODUCT USED FOR UNKNOWN INDICATION
     Dosage: AN UNKNOWN AMOUNT OF LEVETIRACETAM

REACTIONS (18)
  - Cardiac arrest [None]
  - QRS axis abnormal [None]
  - Respiratory depression [None]
  - Ventricular fibrillation [None]
  - Metabolic acidosis [None]
  - Intentional self-injury [None]
  - Electrocardiogram QRS complex prolonged [None]
  - Respiratory acidosis [None]
  - Generalised tonic-clonic seizure [None]
  - Blood potassium decreased [None]
  - Pneumonia aspiration [None]
  - Bradycardia [None]
  - Drug screen positive [None]
  - Intentional overdose [None]
  - Sinus tachycardia [None]
  - Blood pressure increased [None]
  - Depressed level of consciousness [None]
  - Blood glucose increased [None]
